FAERS Safety Report 7985813-1 (Version None)
Quarter: 2011Q4

REPORT INFORMATION
  Report Type: 
  Country: None (occurrence: None)
  Receive Date: 20111216
  Receipt Date: 20111207
  Transmission Date: 20120403
  Serious: Yes (Hospitalization)
  Sender: FDA-Public Use
  Company Number: AU-B.I. PHARMACEUTICALS,INC./RIDGEFIELD-2011-AU-01957AU

PATIENT
  Sex: Male

DRUGS (4)
  1. COVERSYL PLUS [Concomitant]
     Dosage: 5/1.25 ONCE DAILY
     Route: 048
  2. GOSERELIN [Concomitant]
     Indication: PROSTATE CANCER METASTATIC
     Route: 051
  3. PRADAXA [Suspect]
     Indication: PULMONARY EMBOLISM
     Dosage: 150 MG
     Route: 048
     Dates: start: 20110801, end: 20110901
  4. BICLUTAMIDE [Concomitant]
     Indication: PROSTATE CANCER METASTATIC
     Dosage: 50 MG
     Route: 048

REACTIONS (7)
  - SYNCOPE [None]
  - HYPERKALAEMIA [None]
  - HELICOBACTER INFECTION [None]
  - HAEMATEMESIS [None]
  - MELAENA [None]
  - GASTRIC ULCER HAEMORRHAGE [None]
  - ANAEMIA [None]
